FAERS Safety Report 18280991 (Version 4)
Quarter: 2020Q4

REPORT INFORMATION
  Report Type: Report from Study
  Country: None (occurrence: US)
  Receive Date: 20200918
  Receipt Date: 20201028
  Transmission Date: 20210113
  Serious: Yes (Hospitalization, Other)
  Sender: FDA-Public Use
  Company Number: US-ABBVIE-20K-163-3570917-00

PATIENT
  Sex: Male
  Weight: 47.67 kg

DRUGS (1)
  1. HUMIRA [Suspect]
     Active Substance: ADALIMUMAB
     Indication: CROHN^S DISEASE
     Route: 058
     Dates: start: 2016

REACTIONS (10)
  - Atrial fibrillation [Recovered/Resolved]
  - Inappropriate schedule of product administration [Recovered/Resolved]
  - Thrombosis [Not Recovered/Not Resolved]
  - Hypotension [Recovering/Resolving]
  - Weight decreased [Recovering/Resolving]
  - Diarrhoea [Recovering/Resolving]
  - Arthralgia [Recovered/Resolved]
  - Blood pressure decreased [Recovered/Resolved]
  - Haemoglobin decreased [Recovered/Resolved]
  - Blood electrolytes decreased [Recovered/Resolved]

NARRATIVE: CASE EVENT DATE: 2020
